FAERS Safety Report 8156176-6 (Version None)
Quarter: 2012Q1

REPORT INFORMATION
  Report Type: 
  Country: None (occurrence: None)
  Receive Date: 20120216
  Receipt Date: 20120203
  Transmission Date: 20120608
  Serious: Yes (Life-Threatening)
  Sender: FDA-Public Use
  Company Number: 1155574

PATIENT
  Age: 70 Year
  Sex: Male
  Weight: 68 kg

DRUGS (5)
  1. DEXTROSE [Concomitant]
  2. CAPECITABINE [Concomitant]
  3. DEXAMETHASONE [Concomitant]
  4. ONDANSETRON [Concomitant]
  5. OXALIPLATIN [Suspect]
     Indication: COLORECTAL CANCER METASTATIC
     Dosage: 130 MG/M^2 (245 MG), INTRAVENOUS DRIP
     Route: 041
     Dates: start: 20111123, end: 20111123

REACTIONS (8)
  - OEDEMA MOUTH [None]
  - THROAT TIGHTNESS [None]
  - HEART RATE INCREASED [None]
  - HYPERTENSION [None]
  - CHEST DISCOMFORT [None]
  - SENSATION OF HEAVINESS [None]
  - DYSPNOEA [None]
  - LOCAL SWELLING [None]
